FAERS Safety Report 18061362 (Version 7)
Quarter: 2020Q4

REPORT INFORMATION
  Report Type: Spontaneous
  Country: JP (occurrence: JP)
  Receive Date: 20200723
  Receipt Date: 20201130
  Transmission Date: 20210113
  Serious: Yes (Life-Threatening, Hospitalization, Other)
  Sender: FDA-Public Use
  Company Number: JP-PFIZER INC-2020277404

PATIENT
  Age: 74 Year
  Sex: Male
  Weight: 65 kg

DRUGS (20)
  1. LORCAM [LORNOXICAM] [Suspect]
     Active Substance: LORNOXICAM
     Indication: SPINAL COMPRESSION FRACTURE
     Dosage: 8 MG, 2X/DAY
     Route: 048
     Dates: start: 20200629, end: 20200706
  2. TERIPARATIDE RECOMBINANT [Concomitant]
     Dosage: UNK
     Route: 058
     Dates: start: 20200629, end: 20200717
  3. YD SOLITA T NO.1 [Concomitant]
     Dosage: UNK
     Dates: start: 20200701, end: 20200702
  4. BEOVA [Concomitant]
     Dosage: UNK
     Dates: start: 20200121, end: 20200705
  5. ATARAX-P [HYDROXYZINE EMBONATE] [Concomitant]
     Dosage: UNK
     Dates: start: 20200605, end: 20200721
  6. SOLULACT [Concomitant]
     Dosage: UNK
     Dates: start: 20200701, end: 20200702
  7. SOLULACT [Concomitant]
     Dosage: UNK
     Dates: start: 20200730
  8. METOCLOPRAMIDE HYDROCHLORIDE. [Concomitant]
     Active Substance: METOCLOPRAMIDE HYDROCHLORIDE
     Dosage: UNK
     Dates: start: 20200707, end: 20200713
  9. HEPARIN NA LOCK [Concomitant]
     Active Substance: HEPARIN SODIUM
     Dosage: UNK
     Dates: start: 20200713
  10. AMLODIPINE [Concomitant]
     Active Substance: AMLODIPINE BESYLATE
     Dosage: UNK
     Dates: start: 20200314, end: 20200705
  11. HEPARIN NA LOCK [Concomitant]
     Active Substance: HEPARIN SODIUM
     Dosage: UNK
     Dates: start: 20200719
  12. BROMHEXINE HYDROCHLORIDE [Concomitant]
     Active Substance: BROMHEXINE HYDROCHLORIDE
     Dosage: UNK
     Dates: start: 20200702, end: 20200724
  13. SOLULACT [Concomitant]
     Dosage: UNK
     Dates: start: 20200705, end: 20200713
  14. METOCLOPRAMIDE HYDROCHLORIDE. [Concomitant]
     Active Substance: METOCLOPRAMIDE HYDROCHLORIDE
     Dosage: UNK
     Dates: start: 20200701, end: 20200702
  15. HEPARIN NA LOCK [Concomitant]
     Active Substance: HEPARIN SODIUM
     Dosage: UNK
     Dates: start: 20200703, end: 20200703
  16. NAFTOPIDIL OD [Concomitant]
     Active Substance: NAFTOPIDIL
     Dosage: UNK
     Dates: start: 20190115, end: 20200705
  17. METOCLOPRAMIDE HYDROCHLORIDE. [Concomitant]
     Active Substance: METOCLOPRAMIDE HYDROCHLORIDE
     Dosage: UNK
     Dates: start: 20200723
  18. LYRICA [Suspect]
     Active Substance: PREGABALIN
     Indication: SPINAL COMPRESSION FRACTURE
     Dosage: 50 MG, 1X/DAY (25 MG X 2 TABLETS, BEFORE GOING TO BED)
     Route: 048
     Dates: start: 20200629, end: 20200717
  19. REBAMIPIDE OTSUKA [Concomitant]
     Dosage: UNK
     Dates: start: 20200613, end: 20200720
  20. CARBOCYSTEINE [Concomitant]
     Active Substance: CARBOCYSTEINE
     Dosage: UNK
     Dates: start: 20200702, end: 20200724

REACTIONS (4)
  - Interstitial lung disease [Not Recovered/Not Resolved]
  - Pleural effusion [Recovered/Resolved]
  - Pyrexia [Recovered/Resolved]
  - Oculomucocutaneous syndrome [Recovering/Resolving]

NARRATIVE: CASE EVENT DATE: 20200629
